FAERS Safety Report 5892435-5 (Version None)
Quarter: 2008Q3

REPORT INFORMATION
  Report Type: 
  Country: None (occurrence: None)
  Receive Date: 20080923
  Receipt Date: 20080911
  Transmission Date: 20090109
  Serious: Yes (Death, Life-Threatening, Hospitalization)
  Sender: FDA-Public Use
  Company Number: JP-JNJFOC-20080305566

PATIENT
  Sex: Male
  Weight: 43 kg

DRUGS (61)
  1. FENTANYL [Suspect]
     Route: 062
  2. FENTANYL [Suspect]
     Route: 062
  3. FENTANYL [Suspect]
     Indication: PAIN
     Route: 062
  4. FENTANYL [Suspect]
     Indication: CANCER PAIN
     Route: 062
  5. ELASPOL [Concomitant]
     Indication: PNEUMONIA
     Route: 042
  6. ELASPOL [Concomitant]
     Indication: PNEUMONIA ASPIRATION
     Route: 042
  7. FULCALIQ 1 [Concomitant]
     Indication: NUTRITIONAL SUPPORT
     Route: 042
  8. LOXONIN [Concomitant]
     Indication: CANCER PAIN
     Route: 048
  9. EURODIN [Concomitant]
     Indication: INSOMNIA
     Route: 048
  10. BROCIN [Concomitant]
     Indication: COUGH
     Route: 048
  11. ALLOID G [Concomitant]
     Indication: GASTRITIS
     Route: 048
  12. VOLTAREN [Concomitant]
     Indication: PNEUMONIA ASPIRATION
     Route: 054
  13. VOLTAREN [Concomitant]
     Indication: PNEUMONIA
     Route: 054
  14. VOLTAREN [Concomitant]
     Indication: CANCER PAIN
     Route: 054
  15. DUROTEP [Concomitant]
     Indication: CANCER PAIN
     Route: 062
  16. ROPION [Concomitant]
     Route: 042
  17. ROPION [Concomitant]
     Route: 042
  18. ROPION [Concomitant]
     Indication: CANCER PAIN
     Dosage: 50MG 5ML
     Route: 042
  19. VEEN-D [Concomitant]
     Indication: NUTRITIONAL SUPPORT
     Route: 042
  20. SULBACILLIN [Concomitant]
     Indication: PNEUMONIA
     Route: 041
  21. ISOTONIC SODIUM CHLORIDE SOLUTION [Concomitant]
     Indication: PNEUMONIA
     Route: 042
  22. PREDONINE [Concomitant]
     Indication: PNEUMONIA ASPIRATION
     Route: 048
  23. MIDAZOLAM HCL [Concomitant]
     Route: 042
  24. MIDAZOLAM HCL [Concomitant]
     Route: 042
  25. MIDAZOLAM HCL [Concomitant]
     Indication: SEDATION
     Route: 042
  26. GASTER D [Concomitant]
     Indication: GASTRITIS
     Route: 048
  27. ENSURE LIQUID [Concomitant]
     Indication: NUTRITIONAL SUPPORT
     Route: 048
  28. MEROPEN [Concomitant]
     Route: 041
  29. MEROPEN [Concomitant]
     Indication: PNEUMONIA
     Route: 041
  30. MEROPEN [Concomitant]
     Indication: PNEUMONIA ASPIRATION
     Route: 041
  31. ALBUMINATE [Concomitant]
     Indication: BLOOD ALBUMIN DECREASED
     Route: 042
  32. INTRAFAT [Concomitant]
     Indication: NUTRITIONAL SUPPORT
     Route: 042
  33. RHYTHMY [Concomitant]
     Indication: INSOMNIA
     Route: 048
  34. RACOL [Concomitant]
     Indication: NUTRITIONAL SUPPORT
     Route: 048
  35. PURSENNID [Concomitant]
     Indication: CONSTIPATION
     Route: 048
  36. TELEMINSOFT [Concomitant]
     Indication: CONSTIPATION
     Route: 054
  37. LAXOBERON [Concomitant]
     Indication: CONSTIPATION
     Route: 048
  38. PHYSIO 35 [Concomitant]
     Indication: NUTRITIONAL SUPPORT
     Route: 042
  39. VITAMEDIN [Concomitant]
     Indication: NUTRITIONAL SUPPORT
     Route: 042
  40. BISOLVON [Concomitant]
     Indication: PRODUCTIVE COUGH
     Route: 042
  41. FAMOTIDINE [Concomitant]
     Route: 042
  42. FAMOTIDINE [Concomitant]
     Indication: GASTRITIS
     Route: 042
  43. MAXIPIME [Concomitant]
     Indication: PNEUMONIA ASPIRATION
     Route: 042
  44. PREDOPA [Concomitant]
     Indication: PNEUMONIA ASPIRATION
     Route: 042
  45. UNSPECIFIED MEDICATION [Concomitant]
     Indication: COUGH
     Route: 049
  46. FOY [Concomitant]
     Indication: PNEUMONIA ASPIRATION
     Route: 042
  47. BISOLVON [Concomitant]
     Indication: PNEUMONIA ASPIRATION
     Route: 055
  48. VENETLIN [Concomitant]
     Indication: PNEUMONIA ASPIRATION
     Route: 055
  49. SOLDEM 3AG [Concomitant]
     Indication: NUTRITIONAL SUPPORT
     Route: 042
  50. SOL-MELCORT [Concomitant]
     Indication: PNEUMONIA ASPIRATION
     Route: 042
  51. LASIX [Concomitant]
     Route: 042
  52. LASIX [Concomitant]
     Indication: DYSURIA
     Route: 042
  53. BICARBON [Concomitant]
     Indication: NUTRITIONAL SUPPORT
     Route: 042
  54. GLUCOSE [Concomitant]
     Route: 042
  55. GLUCOSE [Concomitant]
     Indication: NUTRITIONAL SUPPORT
     Route: 042
  56. GLUCOSE [Concomitant]
     Indication: MEDICATION DILUTION
     Route: 042
  57. PRIMPERAN INJ [Concomitant]
     Route: 042
  58. DIGOSIN [Concomitant]
     Indication: NUTRITIONAL SUPPORT
     Route: 042
  59. FULCALIQ 2 [Concomitant]
     Indication: NUTRITIONAL SUPPORT
     Route: 042
  60. FULCALIQ 3 [Concomitant]
     Indication: NUTRITIONAL SUPPORT
     Route: 042
  61. LOXONIN [Concomitant]
     Route: 048

REACTIONS (2)
  - DISSEMINATED INTRAVASCULAR COAGULATION [None]
  - PNEUMONIA ASPIRATION [None]
